FAERS Safety Report 9720593 (Version 3)
Quarter: 2014Q1

REPORT INFORMATION
  Report Type: Spontaneous
  Country: BR (occurrence: BR)
  Receive Date: 20131129
  Receipt Date: 20140213
  Transmission Date: 20141002
  Serious: Yes (Hospitalization, Other)
  Sender: FDA-Public Use
  Company Number: PHHY2013BR134611

PATIENT
  Age: 70 Year
  Sex: Female
  Weight: 72 kg

DRUGS (4)
  1. ONBREZ [Suspect]
     Indication: CHRONIC OBSTRUCTIVE PULMONARY DISEASE
     Dosage: 150 MG, BID
     Route: 055
  2. FORASEQ [Suspect]
     Indication: CHRONIC OBSTRUCTIVE PULMONARY DISEASE
     Dosage: 1 DF, QD
     Route: 055
  3. SERETIDE [Suspect]
     Indication: CHRONIC OBSTRUCTIVE PULMONARY DISEASE
     Dosage: 1 DF, QD
     Route: 055
  4. PREDNISONE [Suspect]
     Indication: DYSPNOEA
     Dosage: 2 DF, DAILY
     Route: 048

REACTIONS (12)
  - Pleural effusion [Recovered/Resolved]
  - Chronic obstructive pulmonary disease [Recovering/Resolving]
  - Generalised oedema [Recovered/Resolved]
  - Swelling face [Recovered/Resolved]
  - Dysphonia [Not Recovered/Not Resolved]
  - Abasia [Recovered/Resolved]
  - Malaise [Unknown]
  - Fatigue [Recovered/Resolved]
  - Inappropriate schedule of drug administration [Unknown]
  - Dyspnoea [Recovered/Resolved]
  - Aphonia [Not Recovered/Not Resolved]
  - Oral candidiasis [Not Recovered/Not Resolved]
